FAERS Safety Report 9011711 (Version 1)
Quarter: 2013Q1

REPORT INFORMATION
  Report Type: Spontaneous
  Country: IT (occurrence: IT)
  Receive Date: 20130107
  Receipt Date: 20130107
  Transmission Date: 20140127
  Serious: Yes (Hospitalization, Other)
  Sender: FDA-Public Use
  Company Number: IT-ASTRAZENECA-2012SE96240

PATIENT
  Age: 84 Year
  Sex: Male

DRUGS (7)
  1. SEROQUEL [Suspect]
     Indication: DEPRESSION
     Route: 048
     Dates: start: 20110301
  2. COUMADIN [Interacting]
     Indication: ATRIAL FIBRILLATION
     Route: 048
     Dates: start: 20110501, end: 20121217
  3. ZOLOFT (SERTRALINE) [Interacting]
     Indication: DEPRESSION
     Route: 048
     Dates: start: 20110301
  4. LASIX (FUROSEMIDE) [Concomitant]
     Route: 048
  5. LOVINACOR (LOVASTATIN) [Concomitant]
     Route: 048
  6. MINITRAN (NYTROGLICERIN) [Concomitant]
     Dosage: 10 MG/24 H TRANSDERMAL PATCH, 1 DF
     Route: 062
  7. CONGESCOR (BISOPROLOL) [Concomitant]
     Route: 048

REACTIONS (4)
  - Drug interaction [Unknown]
  - International normalised ratio increased [Recovering/Resolving]
  - Rectal haemorrhage [Recovering/Resolving]
  - Haematoma [Unknown]
